FAERS Safety Report 24905755 (Version 1)
Quarter: 2025Q1

REPORT INFORMATION
  Report Type: Spontaneous
  Country: US (occurrence: US)
  Receive Date: 20250130
  Receipt Date: 20250130
  Transmission Date: 20250409
  Serious: Yes (Other)
  Sender: BAYER HEALTHCARE PHARMACEUTICALS INC.
  Company Number: US-BAYER-2025A011567

PATIENT
  Sex: Female

DRUGS (8)
  1. BETASERON [Suspect]
     Active Substance: INTERFERON BETA-1B
     Indication: Product used for unknown indication
     Dates: start: 2007, end: 2010
  2. OCREVUS [Concomitant]
     Active Substance: OCRELIZUMAB
  3. LOSARTAN AND HYDROCHLOROTHIAZIDE [Concomitant]
     Active Substance: HYDROCHLOROTHIAZIDE\LOSARTAN POTASSIUM
  4. ESCITALOPRAM [Concomitant]
     Active Substance: ESCITALOPRAM OXALATE
  5. LINZESS [Concomitant]
     Active Substance: LINACLOTIDE
  6. GABAPENTIN [Concomitant]
     Active Substance: GABAPENTIN
  7. COPAXONE [Concomitant]
     Active Substance: GLATIRAMER ACETATE
  8. KESIMPTA [Concomitant]
     Active Substance: OFATUMUMAB

REACTIONS (2)
  - Multiple sclerosis [Not Recovered/Not Resolved]
  - Therapy cessation [Not Recovered/Not Resolved]
